FAERS Safety Report 10043913 (Version 1)
Quarter: 2014Q1

REPORT INFORMATION
  Report Type: Spontaneous
  Country: US (occurrence: US)
  Receive Date: 20140328
  Receipt Date: 20140328
  Transmission Date: 20141002
  Serious: No
  Sender: FDA-Public Use
  Company Number: US-MYLANLABS-2013S1003853

PATIENT
  Age: 60 Year
  Sex: Male
  Weight: 68.04 kg

DRUGS (2)
  1. EMSAM (SELEGILINE TRANSDERMAL SYSTEM) [Suspect]
     Indication: DEPRESSION
     Route: 062
     Dates: start: 20130215, end: 20130217
  2. EMSAM (SELEGILINE TRANSDERMAL SYSTEM) [Suspect]
     Indication: ANXIETY
     Route: 062
     Dates: start: 20130215, end: 20130217

REACTIONS (2)
  - Depression [Not Recovered/Not Resolved]
  - Anxiety [Not Recovered/Not Resolved]
